FAERS Safety Report 5914886-2 (Version None)
Quarter: 2008Q4

REPORT INFORMATION
  Report Type: 
  Country: None (occurrence: None)
  Receive Date: 20081010
  Receipt Date: 20081003
  Transmission Date: 20090506
  Serious: Yes (Other)
  Sender: FDA-Public Use
  Company Number: PHHY2008NL21973

PATIENT
  Sex: Male

DRUGS (4)
  1. SANDOSTATINE (FOR S.C. INJECT.) [Suspect]
     Indication: FISTULA
     Dosage: 0.5 MG/ML, TID
     Route: 058
     Dates: start: 20080918
  2. SANDOSTATINE (FOR S.C. INJECT.) [Suspect]
     Dosage: 0.1 MG/ML, TID
     Route: 058
  3. SANDOSTATINE (FOR S.C. INJECT.) [Suspect]
     Dosage: 3X100 MG
     Route: 058
  4. SANDOSTATIN LAR [Suspect]
     Dosage: 20 MG
     Dates: start: 20080929

REACTIONS (6)
  - ABDOMINAL PAIN [None]
  - ANOREXIA [None]
  - CONFUSIONAL STATE [None]
  - DEPRESSION [None]
  - GASTROINTESTINAL DISORDER [None]
  - VOMITING [None]
